FAERS Safety Report 5340866-4 (Version None)
Quarter: 2007Q2

REPORT INFORMATION
  Report Type: 
  Country: None (occurrence: None)
  Receive Date: 20070405
  Receipt Date: 20061205
  Transmission Date: 20071010
  Serious: No
  Sender: FDA-Public Use
  Company Number: US200611003370

PATIENT
  Age: 43 Year
  Sex: Female

DRUGS (5)
  1. CYMBALTA [Suspect]
     Dosage: 30 MG,
     Dates: start: 20061106
  2. PREGABALIN (PREGABALIN) [Concomitant]
  3. VALIUM /NET/ (DIAZEPAM) [Concomitant]
  4. SYNTHROID [Concomitant]
  5. LASIX [Concomitant]

REACTIONS (7)
  - AGITATION [None]
  - ANXIETY [None]
  - CRYING [None]
  - DRUG WITHDRAWAL SYNDROME [None]
  - FEELING HOT [None]
  - FEELING OF DESPAIR [None]
  - PALPITATIONS [None]
